FAERS Safety Report 8077992-5 (Version None)
Quarter: 2012Q1

REPORT INFORMATION
  Report Type: 
  Country: None (occurrence: None)
  Receive Date: 20120127
  Receipt Date: 20110104
  Transmission Date: 20120608
  Serious: No
  Sender: FDA-Public Use
  Company Number: US-ABBOTT-11P-163-0695859-00

PATIENT
  Sex: Male
  Weight: 120.31 kg

DRUGS (9)
  1. HUMIRA [Suspect]
     Indication: PSORIATIC ARTHROPATHY
  2. PREDNISONE [Suspect]
     Indication: PSORIASIS
     Route: 048
     Dates: start: 20100901
  3. PREDNISONE [Suspect]
     Indication: PSORIATIC ARTHROPATHY
  4. INDOMETHACIN [Concomitant]
     Indication: PRODUCT USED FOR UNKNOWN INDICATION
     Route: 048
  5. CLOBETASOL [Concomitant]
     Indication: RASH
     Route: 061
  6. HUMIRA [Suspect]
     Indication: PSORIASIS
     Route: 048
     Dates: start: 20090901, end: 20100901
  7. ALBUTEROL [Concomitant]
     Indication: ASTHMA
  8. METHOCORTISOL [Concomitant]
     Indication: MUSCLE RELAXANT THERAPY
  9. NAPROSYN [Concomitant]
     Indication: PRODUCT USED FOR UNKNOWN INDICATION
     Route: 048

REACTIONS (6)
  - PSORIASIS [None]
  - DRUG INEFFECTIVE [None]
  - ONYCHOMADESIS [None]
  - POLLAKIURIA [None]
  - JOINT SWELLING [None]
  - ARTHRALGIA [None]
